FAERS Safety Report 5251972-7 (Version None)
Quarter: 2007Q1

REPORT INFORMATION
  Report Type: 
  Country: None (occurrence: None)
  Receive Date: 20070223
  Receipt Date: 20070213
  Transmission Date: 20070707
  Serious: Yes (Death)
  Sender: FDA-Public Use
  Company Number: 163-21880-07011093

PATIENT
  Age: 57 Year
  Sex: Male

DRUGS (1)
  1. REVLIMID [Suspect]
     Indication: MYELODYSPLASTIC SYNDROME
     Dosage: 10 MG, 1 IN 1D, ORAL
     Route: 048
     Dates: start: 20061110, end: 20061201

REACTIONS (2)
  - MALIGNANT NEOPLASM PROGRESSION [None]
  - MYELODYSPLASTIC SYNDROME [None]
